FAERS Safety Report 4676356-1 (Version None)
Quarter: 2005Q2

REPORT INFORMATION
  Report Type: 
  Country: None (occurrence: None)
  Receive Date: 20050527
  Receipt Date: 20050225
  Transmission Date: 20051028
  Serious: Yes (Hospitalization)
  Sender: FDA-Public Use
  Company Number: US-GLAXOSMITHKLINE-A0547354A

PATIENT
  Age: 65 Year
  Sex: Female
  Weight: 66.4 kg

DRUGS (3)
  1. WELLBUTRIN XL [Suspect]
     Indication: ANXIETY
     Route: 048
     Dates: start: 20050201, end: 20050223
  2. COUMADIN [Concomitant]
  3. ULTRAM [Concomitant]

REACTIONS (2)
  - ANXIETY [None]
  - NAUSEA [None]
